FAERS Safety Report 22590108 (Version 1)
Quarter: 2023Q2

REPORT INFORMATION
  Report Type: Spontaneous
  Country: US (occurrence: None)
  Receive Date: 20230609
  Receipt Date: 20230609
  Transmission Date: 20230722
  Serious: No
  Sender: FDA-Public Use
  Company Number: None

PATIENT
  Age: 61 Year
  Sex: Female

DRUGS (11)
  1. HUMIRA [Suspect]
     Active Substance: ADALIMUMAB
     Indication: Ankylosing spondylitis
     Dosage: 40MG EVERY 2 WEEKS INJECTION?
     Route: 058
     Dates: start: 20211021
  2. ATORVASTATIN [Concomitant]
     Active Substance: ATORVASTATIN
  3. LEFLUNOMIDE [Concomitant]
     Active Substance: LEFLUNOMIDE
  4. LOSARTAN [Concomitant]
     Active Substance: LOSARTAN
  5. FLOVENT DISKUS [Concomitant]
     Active Substance: FLUTICASONE PROPIONATE
  6. GLUCOSAMINE CHONDROITIN DBL STR [Concomitant]
  7. VITAMIN D [Concomitant]
     Active Substance: VITAMIN D NOS
  8. ALBUTEROL SULFATE [Concomitant]
     Active Substance: ALBUTEROL SULFATE
  9. FISH OIL [Concomitant]
     Active Substance: FISH OIL
  10. FOLIC ACID [Concomitant]
     Active Substance: FOLIC ACID
  11. LORATADINE [Concomitant]
     Active Substance: LORATADINE

REACTIONS (2)
  - Joint stiffness [None]
  - Arthralgia [None]

NARRATIVE: CASE EVENT DATE: 20230531
